FAERS Safety Report 9696140 (Version 1)
Quarter: 2013Q4

REPORT INFORMATION
  Report Type: Spontaneous
  Country: US (occurrence: US)
  Receive Date: 20131119
  Receipt Date: 20131119
  Transmission Date: 20140711
  Serious: Yes (Hospitalization)
  Sender: FDA-Public Use
  Company Number: US-INCYTE CORPORATION-2013IN002679

PATIENT
  Age: 67 Year
  Sex: Male

DRUGS (19)
  1. JAKAFI [Suspect]
     Indication: MYELOFIBROSIS
     Dosage: 25 MG, BID
     Route: 048
     Dates: end: 2013
  2. JAKAFI [Suspect]
     Dosage: NOT SPECIFIED
     Route: 048
     Dates: start: 2013
  3. COREG [Concomitant]
  4. PROTONIX [Concomitant]
  5. PROCARDIA                          /00340701/ [Concomitant]
  6. CRESTOR [Concomitant]
  7. ALLOPURINOL [Concomitant]
  8. ALBUTEROL                          /00139501/ [Concomitant]
  9. TRAMADOL [Concomitant]
  10. METOLAZONE [Concomitant]
  11. HYDRALAZINE [Concomitant]
  12. MAGNESIUM [Concomitant]
  13. ZINC SULFATE [Concomitant]
  14. HYDROXYUREA [Concomitant]
  15. POTASSIUM CHLORIDE [Concomitant]
  16. PLAVIX [Concomitant]
  17. ISOSORBIDE MONONITRATE [Concomitant]
  18. RENVELA [Concomitant]
  19. ZYRTEC [Concomitant]

REACTIONS (1)
  - Pneumonia [Not Recovered/Not Resolved]
